FAERS Safety Report 9053793 (Version 1)
Quarter: 2013Q1

REPORT INFORMATION
  Report Type: Spontaneous
  Country: US (occurrence: None)
  Receive Date: 20130201
  Receipt Date: 20130201
  Transmission Date: 20140127
  Serious: Yes (Other)
  Sender: FDA-Public Use
  Company Number: None

PATIENT
  Age: 53 Year
  Sex: Female
  Weight: 52.16 kg

DRUGS (3)
  1. TAMIFLU CAPSULES 75 MG GENENTEK [Suspect]
     Indication: TINNITUS
     Route: 048
     Dates: start: 20130129, end: 20130203
  2. TYLENOL [Concomitant]
  3. MULTIVITAMIN [Concomitant]

REACTIONS (3)
  - Hearing impaired [None]
  - Initial insomnia [None]
  - Somnolence [None]
